FAERS Safety Report 13041180 (Version 1)
Quarter: 2016Q4

REPORT INFORMATION
  Report Type: Spontaneous
  Country: CA (occurrence: CA)
  Receive Date: 20161219
  Receipt Date: 20161219
  Transmission Date: 20170207
  Serious: Yes (Disabling)
  Sender: FDA-Public Use
  Company Number: CA-PFIZER INC-2016513861

PATIENT
  Age: 40 Year
  Sex: Female

DRUGS (1)
  1. PREMARIN [Suspect]
     Active Substance: ESTROGENS, CONJUGATED
     Indication: VULVOVAGINAL DRYNESS
     Dosage: 1 DF (1 APPLICATION),  2 TO 3 TIMES A WEEK
     Route: 067
     Dates: start: 20160820

REACTIONS (1)
  - Breath odour [Unknown]

NARRATIVE: CASE EVENT DATE: 20160820
